FAERS Safety Report 8604937 (Version 2)
Quarter: 2015Q1

REPORT INFORMATION
  Report Type: Report from Study
  Country: GR (occurrence: GR)
  Receive Date: 20120608
  Receipt Date: 20150106
  Transmission Date: 20150721
  Serious: Yes (Other)
  Sender: FDA-Public Use
  Company Number: GR-ROCHE-1073476

PATIENT

DRUGS (2)
  1. TEMSIROLIMUS [Suspect]
     Active Substance: TEMSIROLIMUS
     Indication: HEPATOCELLULAR CARCINOMA
     Dosage: TOTAL DOSE: 25 MG
     Route: 042
  2. BEVACIZUMAB [Suspect]
     Active Substance: BEVACIZUMAB
     Indication: HEPATOCELLULAR CARCINOMA
     Route: 042

REACTIONS (6)
  - Posterior reversible encephalopathy syndrome [Unknown]
  - Hyperglycaemia [Unknown]
  - Hypertension [Unknown]
  - Diarrhoea [Unknown]
  - Hyperlipidaemia [Unknown]
  - Infection [Unknown]
